FAERS Safety Report 4464015-X (Version None)
Quarter: 2004Q4

REPORT INFORMATION
  Report Type: 
  Country: None (occurrence: None)
  Receive Date: 20041001
  Receipt Date: 20040922
  Transmission Date: 20050328
  Serious: Yes (Hospitalization)
  Sender: FDA-Public Use
  Company Number: JP-ABBOTT-04P-087-0274405-00

PATIENT
  Age: 55 Year
  Sex: Female
  Weight: 62 kg

DRUGS (7)
  1. SEVOFLURANE LIQUID FOR INHALATION [Suspect]
     Indication: ANAESTHESIA
     Route: 055
  2. THEOPHYLLINE [Concomitant]
     Indication: ASTHMA
     Route: 048
  3. BROMHEXINE HYDROCHLORIDE [Concomitant]
     Indication: ASTHMA
     Route: 048
  4. MABUTEROL HYDROCHLORIDE [Concomitant]
     Indication: ASTHMA
     Route: 048
  5. HYDROCORTISONE SODIUM SUCCINATE [Concomitant]
     Indication: ASTHMA
     Route: 042
  6. FLUTICASONE PROPIONATE [Concomitant]
     Indication: ASTHMA
     Route: 055
  7. CARBON DIOXIDE [Concomitant]
     Indication: DRUG USE FOR UNKNOWN INDICATION

REACTIONS (1)
  - ATELECTASIS [None]
